FAERS Safety Report 15277860 (Version 1)
Quarter: 2018Q3

REPORT INFORMATION
  Report Type: Spontaneous
  Country: FR (occurrence: FR)
  Receive Date: 20180814
  Receipt Date: 20180814
  Transmission Date: 20181010
  Serious: Yes (Life-Threatening, Other)
  Sender: FDA-Public Use
  Company Number: FR-PFIZER INC-2018322829

PATIENT
  Sex: Female
  Weight: 104 kg

DRUGS (1)
  1. ADEPAL [Suspect]
     Active Substance: ETHINYL ESTRADIOL\LEVONORGESTREL
     Indication: CHEMICAL CONTRACEPTION
     Dosage: 1 DF, 1X/DAY
     Route: 048
     Dates: end: 20180620

REACTIONS (1)
  - Pulmonary embolism [Recovered/Resolved with Sequelae]

NARRATIVE: CASE EVENT DATE: 20180620
